FAERS Safety Report 9132375 (Version 1)
Quarter: 2013Q1

REPORT INFORMATION
  Report Type: Spontaneous
  Country: US (occurrence: US)
  Receive Date: 20130107
  Receipt Date: 20130107
  Transmission Date: 20140127
  Serious: Yes (Hospitalization)
  Sender: FDA-Public Use
  Company Number: US-GLAXOSMITHKLINE-B0762071A

PATIENT
  Age: 22 Year
  Sex: Female

DRUGS (3)
  1. ALBUTEROL [Suspect]
     Indication: PRODUCT USED FOR UNKNOWN INDICATION
     Route: 065
  2. SALMETEROL + FLUTICASONE [Concomitant]
  3. MONTELUKAST [Concomitant]

REACTIONS (12)
  - Lactic acidosis [Recovered/Resolved]
  - Dyspnoea [Unknown]
  - Emotional distress [Unknown]
  - Tachycardia [Unknown]
  - Peak expiratory flow rate decreased [Unknown]
  - Wheezing [Unknown]
  - Hypoventilation [Unknown]
  - Blood lactic acid increased [Unknown]
  - Tachypnoea [Unknown]
  - Hypertension [Unknown]
  - Dyspnoea [Unknown]
  - Respiratory distress [Unknown]
